FAERS Safety Report 24526527 (Version 1)
Quarter: 2024Q4

REPORT INFORMATION
  Report Type: Report from Study
  Country: US (occurrence: US)
  Receive Date: 20241021
  Receipt Date: 20241021
  Transmission Date: 20250115
  Serious: No
  Sender: ROCHE
  Company Number: US-ROCHE-3460788

PATIENT
  Age: 75 Year
  Sex: Female

DRUGS (22)
  1. ZELBORAF [Suspect]
     Active Substance: VEMURAFENIB
     Indication: Langerhans^ cell histiocytosis
     Route: 048
  2. TYLENOL EXTRA STRENGTH [Concomitant]
     Active Substance: ACETAMINOPHEN
     Route: 048
  3. NORVASC [Concomitant]
     Active Substance: AMLODIPINE BESYLATE
     Route: 048
  4. VITAMIN C [Concomitant]
     Active Substance: ASCORBIC ACID
     Route: 048
  5. CALCIUM CARBONATE [Concomitant]
     Active Substance: CALCIUM CARBONATE
     Route: 048
  6. VITAMIN B12 [Concomitant]
     Active Substance: CYANOCOBALAMIN
     Route: 048
  7. CALCIUM\CHOLECALCIFEROL [Concomitant]
     Active Substance: CALCIUM\CHOLECALCIFEROL
     Route: 048
  8. NEURONTIN [Concomitant]
     Active Substance: GABAPENTIN
     Route: 048
  9. HYDROCHLOROTHIAZIDE [Concomitant]
     Active Substance: HYDROCHLOROTHIAZIDE
     Route: 048
  10. DILAUDID [Concomitant]
     Active Substance: HYDROMORPHONE HYDROCHLORIDE
     Indication: Pain
     Route: 048
  11. TOPROL XL [Concomitant]
     Active Substance: METOPROLOL SUCCINATE
  12. VITAMINS [Concomitant]
     Active Substance: VITAMINS
     Route: 048
  13. FISH OIL [Concomitant]
     Active Substance: FISH OIL
     Route: 048
  14. ROXICODONE [Concomitant]
     Active Substance: OXYCODONE HYDROCHLORIDE
     Route: 048
  15. OXYGEN [Concomitant]
     Active Substance: OXYGEN
  16. DELTASONE [Concomitant]
     Active Substance: PREDNISONE
     Route: 048
  17. CRESTOR [Concomitant]
     Active Substance: ROSUVASTATIN CALCIUM
     Route: 048
  18. SENOKOT-S [Concomitant]
     Active Substance: DOCUSATE SODIUM\SENNOSIDES
     Indication: Constipation
     Dosage: 8.6 TO 50 MG
     Route: 048
  19. BACTRIM DS [Concomitant]
     Active Substance: SULFAMETHOXAZOLE\TRIMETHOPRIM
     Dosage: 160 TO 800 MG
     Route: 048
  20. PREDNISONE [Concomitant]
     Active Substance: PREDNISONE
  21. SEPTRA DS [Concomitant]
     Active Substance: SULFAMETHOXAZOLE\TRIMETHOPRIM
     Dosage: 160-800 MG
     Route: 048
  22. ESTRACE [Concomitant]
     Active Substance: ESTRADIOL

REACTIONS (2)
  - Off label use [Unknown]
  - No adverse event [Unknown]
